FAERS Safety Report 9779183 (Version 4)
Quarter: 2014Q1

REPORT INFORMATION
  Report Type: Spontaneous
  Country: US (occurrence: US)
  Receive Date: 20131223
  Receipt Date: 20140306
  Transmission Date: 20141002
  Serious: No
  Sender: FDA-Public Use
  Company Number: US-PFIZER INC-2013365367

PATIENT
  Age: 55 Year
  Sex: Female

DRUGS (1)
  1. CELEBREX [Suspect]
     Indication: FIBROMYALGIA
     Dosage: 200 EVERY DAY AS NEEDED (PRN)
     Route: 048
     Dates: end: 20130217

REACTIONS (3)
  - Drug hypersensitivity [Unknown]
  - Drug intolerance [Unknown]
  - Drug ineffective [Unknown]
